FAERS Safety Report 9281365 (Version 1)
Quarter: 2013Q2

REPORT INFORMATION
  Report Type: Spontaneous
  Country: GB (occurrence: GB)
  Receive Date: 20130509
  Receipt Date: 20130509
  Transmission Date: 20140414
  Serious: Yes (Other)
  Sender: FDA-Public Use
  Company Number: GB-TEVA-403463ISR

PATIENT
  Age: 27 Year
  Sex: Female
  Weight: 57.15 kg

DRUGS (3)
  1. TRAMADOL [Suspect]
     Indication: GASTROINTESTINAL PAIN
     Dosage: INDICATION: PAINFUL COLON.?50MG TABLETS
     Route: 048
     Dates: start: 200806
  2. CODEINE [Concomitant]
  3. ORAMORPH [Concomitant]

REACTIONS (2)
  - Pruritus generalised [Recovered/Resolved]
  - Insomnia [Recovered/Resolved]
